FAERS Safety Report 9642174 (Version 2)
Quarter: 2015Q4

REPORT INFORMATION
  Report Type: Report from Study
  Country: US (occurrence: US)
  Receive Date: 20131023
  Receipt Date: 20151026
  Transmission Date: 20160305
  Serious: Yes (Other)
  Sender: FDA-Public Use
  Company Number: US-ROCHE-1290255

PATIENT
  Sex: Female

DRUGS (14)
  1. FOLIC ACID. [Concomitant]
     Active Substance: FOLIC ACID
     Dosage: ONCE A DAY
     Route: 065
  2. CEFTIN (UNITED STATES) [Concomitant]
     Dosage: TWICE A DAY
     Route: 065
  3. RITUXAN [Suspect]
     Active Substance: RITUXIMAB
     Indication: RHEUMATOID ARTHRITIS
     Dosage: DAY 1 AND DAY 15
     Route: 042
     Dates: start: 20131011, end: 20131011
  4. ABILIFY [Concomitant]
     Active Substance: ARIPIPRAZOLE
     Dosage: ONCE A DAY
     Route: 065
  5. FAMOTIDINE. [Concomitant]
     Active Substance: FAMOTIDINE
     Dosage: 1 BID
     Route: 065
  6. LEXAPRO [Concomitant]
     Active Substance: ESCITALOPRAM OXALATE
     Dosage: ONCE A DAY
     Route: 065
  7. BENZONATATE. [Concomitant]
     Active Substance: BENZONATATE
     Dosage: ONCE A DAY
     Route: 065
  8. FAMOTIDINE. [Concomitant]
     Active Substance: FAMOTIDINE
     Route: 065
  9. SYNTHROID [Concomitant]
     Active Substance: LEVOTHYROXINE SODIUM
     Dosage: 150 MCG, 1 TAB ONCE A DAY
     Route: 065
  10. IMURAN [Concomitant]
     Active Substance: AZATHIOPRINE
     Dosage: HALF A TAB ONCE A DAY
     Route: 065
  11. PREDNISONE. [Concomitant]
     Active Substance: PREDNISONE
     Dosage: 3 TIMES PER DAY
     Route: 048
  12. METHOTREXATE [Concomitant]
     Active Substance: METHOTREXATE
  13. FOSAMAX [Concomitant]
     Active Substance: ALENDRONATE SODIUM
     Dosage: ONCE A WEEK
     Route: 065
  14. ALPRAZOLAM. [Concomitant]
     Active Substance: ALPRAZOLAM
     Dosage: TWICE A DAY
     Route: 065

REACTIONS (2)
  - Haemoptysis [Unknown]
  - Injection site pain [Unknown]
